FAERS Safety Report 4959172-2 (Version None)
Quarter: 2006Q1

REPORT INFORMATION
  Report Type: 
  Country: None (occurrence: None)
  Receive Date: 20060330
  Receipt Date: 20060330
  Transmission Date: 20060701
  Serious: Yes (Disabling)
  Sender: FDA-Public Use
  Company Number: None

PATIENT
  Age: 74 Year
  Sex: Male
  Weight: 70 kg

DRUGS (2)
  1. FENTANYL [Suspect]
     Indication: CANCER PAIN
     Dosage: 150 MG OVER 3 DAYS TRANSDERMAL
     Route: 062
     Dates: start: 20060131, end: 20060207
  2. FENTANYL [Suspect]
     Indication: CANCER PAIN
     Dosage: 50 MG OVER 3 DAYS TRANSDERMAL
     Route: 062
     Dates: start: 20060131, end: 20060207

REACTIONS (2)
  - MENTAL STATUS CHANGES [None]
  - RASH [None]
